FAERS Safety Report 5394250-8 (Version None)
Quarter: 2007Q3

REPORT INFORMATION
  Report Type: 
  Country: None (occurrence: None)
  Receive Date: 20070723
  Receipt Date: 20070523
  Transmission Date: 20080115
  Serious: No
  Sender: FDA-Public Use
  Company Number: A0651777A

PATIENT
  Age: 61 Year
  Sex: Female

DRUGS (3)
  1. AVANDIA [Suspect]
     Dosage: 8MG IN THE MORNING
     Route: 048
     Dates: start: 20070505, end: 20070517
  2. AVANDARYL [Suspect]
     Route: 048
     Dates: start: 20070517
  3. NO CONCURRENT MEDICATION [Concomitant]

REACTIONS (3)
  - BLOOD GLUCOSE DECREASED [None]
  - BLOOD GLUCOSE INCREASED [None]
  - DRUG INEFFECTIVE [None]
